FAERS Safety Report 4585491-8 (Version None)
Quarter: 2005Q1

REPORT INFORMATION
  Report Type: 
  Country: None (occurrence: None)
  Receive Date: 20050114
  Receipt Date: 20050114
  Transmission Date: 20050727
  Serious: No
  Sender: FDA-Public Use
  Company Number: None

PATIENT
  Age: 46 Year
  Sex: Female

DRUGS (2)
  1. TOPAMAX [Suspect]
     Dosage: TABLET
  2. TOPROL-XL [Suspect]
     Dosage: TABLET

REACTIONS (1)
  - MEDICATION ERROR [None]
